FAERS Safety Report 15051470 (Version 1)
Quarter: 2018Q2

REPORT INFORMATION
  Report Type: Spontaneous
  Country: DE (occurrence: DE)
  Receive Date: 20180622
  Receipt Date: 20180622
  Transmission Date: 20180711
  Serious: Yes (Hospitalization, Other)
  Sender: FDA-Public Use
  Company Number: DE-GILEAD-2018-0342398

PATIENT
  Age: 23 Year
  Sex: Male
  Weight: 61 kg

DRUGS (2)
  1. GENVOYA [Suspect]
     Active Substance: COBICISTAT\ELVITEGRAVIR\EMTRICITABINE\TENOFOVIR ALAFENAMIDE FUMARATE
     Indication: HIV INFECTION
     Dosage: UNK UNK, QD
     Route: 048
     Dates: start: 20180515, end: 20180601
  2. INFECTOCILLIN                      /00000903/ [Concomitant]
     Indication: SYPHILIS
     Dosage: UNK
     Route: 042
     Dates: start: 20180511, end: 20180525

REACTIONS (4)
  - Immune reconstitution inflammatory syndrome [Unknown]
  - Rash generalised [Recovered/Resolved]
  - Rash [Unknown]
  - C-reactive protein increased [Unknown]

NARRATIVE: CASE EVENT DATE: 20180528
